FAERS Safety Report 7033067-5 (Version None)
Quarter: 2010Q4

REPORT INFORMATION
  Report Type: 
  Country: None (occurrence: None)
  Receive Date: 20101007
  Receipt Date: 20101001
  Transmission Date: 20110411
  Serious: Yes (Other)
  Sender: FDA-Public Use
  Company Number: JP-PFIZER INC-2010124526

PATIENT
  Age: 37 Year
  Sex: Female

DRUGS (3)
  1. ZITHROMAC SR [Suspect]
     Route: 048
  2. GARENOXACIN MESILATE [Suspect]
  3. MERCAZOLE [Concomitant]

REACTIONS (2)
  - DRUG INEFFECTIVE [None]
  - RHABDOMYOLYSIS [None]
